FAERS Safety Report 4575725-8 (Version None)
Quarter: 2005Q1

REPORT INFORMATION
  Report Type: 
  Country: None (occurrence: None)
  Receive Date: 20050201
  Receipt Date: 20050201
  Transmission Date: 20050727
  Serious: Yes (Hospitalization)
  Sender: FDA-Public Use
  Company Number: None

PATIENT
  Age: 77 Year
  Sex: Male
  Weight: 49.3 kg

DRUGS (7)
  1. PYRIDIUM 200 MG [Suspect]
     Indication: DYSURIA
     Dosage: 200 MG QID PO [ 7 DAYS PRIOR TO HOSPITALIZATION]
     Route: 048
  2. PYRIDIUM 200 MG [Suspect]
     Indication: URINARY TRACT INFECTION
     Dosage: 200 MG QID PO [ 7 DAYS PRIOR TO HOSPITALIZATION]
     Route: 048
  3. TYLENOL W/ CODEINE NO. 3 [Concomitant]
  4. GLUCOTROL [Concomitant]
  5. FLOMAX [Concomitant]
  6. LASIX [Concomitant]
  7. RESTORIL [Concomitant]

REACTIONS (10)
  - ACUTE RESPIRATORY FAILURE [None]
  - ANAEMIA [None]
  - CHROMATURIA [None]
  - CONFUSIONAL STATE [None]
  - DISORIENTATION [None]
  - JAUNDICE [None]
  - MENTAL STATUS CHANGES [None]
  - METABOLIC ACIDOSIS [None]
  - MYOCARDIAL INFARCTION [None]
  - RENAL FAILURE [None]
